FAERS Safety Report 10103366 (Version 1)
Quarter: 2014Q2

REPORT INFORMATION
  Report Type: Spontaneous
  Country: US (occurrence: US)
  Receive Date: 20140424
  Receipt Date: 20140424
  Transmission Date: 20141212
  Serious: No
  Sender: FDA-Public Use
  Company Number: US-BRISTOL-MYERS SQUIBB COMPANY-20347282

PATIENT
  Age: 38 Year
  Sex: Male
  Weight: 81.63 kg

DRUGS (7)
  1. ELIQUIS [Suspect]
     Dates: start: 201402
  2. WARFARIN [Suspect]
     Indication: MUSCULAR DYSTROPHY
  3. WARFARIN [Suspect]
     Indication: ATRIAL FIBRILLATION
  4. PREVACID [Concomitant]
     Indication: GASTROOESOPHAGEAL REFLUX DISEASE
  5. DIOVAN [Concomitant]
  6. CLARINEX [Concomitant]
     Route: 048
  7. LOPRESSOR [Concomitant]
     Dosage: TAKES 1.5 TABLETS BID, TOTAL OF 75MG DAILY

REACTIONS (9)
  - Headache [Unknown]
  - Vertigo [Unknown]
  - Gastric disorder [Unknown]
  - Asthenia [Unknown]
  - Arthralgia [Unknown]
  - Blood pressure decreased [Recovering/Resolving]
  - Urine output increased [Unknown]
  - Flank pain [Unknown]
  - Circumstance or information capable of leading to medication error [Unknown]
